FAERS Safety Report 9721676 (Version 2)
Quarter: 2014Q1

REPORT INFORMATION
  Report Type: Spontaneous
  Country: US (occurrence: US)
  Receive Date: 20131201
  Receipt Date: 20140228
  Transmission Date: 20141002
  Serious: No
  Sender: FDA-Public Use
  Company Number: US-ABBVIE-13P-163-1169887-00

PATIENT
  Sex: Male
  Weight: 90.8 kg

DRUGS (11)
  1. ANDROGEL [Suspect]
     Indication: BLOOD TESTOSTERONE DECREASED
     Dosage: 2 PUMPS
     Route: 061
     Dates: start: 201302
  2. ANDROGEL [Suspect]
     Indication: BLOOD TESTOSTERONE DECREASED
     Dosage: 3 PUMPS
     Route: 061
     Dates: start: 2008, end: 201211
  3. TRILIPIX [Concomitant]
     Indication: BLOOD TRIGLYCERIDES INCREASED
  4. LEVOTHYROXINE [Concomitant]
     Indication: HYPOTHYROIDISM
  5. CITALOPRAM [Concomitant]
     Indication: PRODUCT USED FOR UNKNOWN INDICATION
  6. CELEBREX [Concomitant]
     Indication: ARTHRITIS
  7. ASPIRIN [Concomitant]
     Indication: ANTICOAGULANT THERAPY
  8. MULTIVITAMIN [Concomitant]
     Indication: VITAMIN SUPPLEMENTATION
  9. FISH OIL [Concomitant]
     Indication: VITAMIN SUPPLEMENTATION
  10. FLAX SEED OIL [Concomitant]
     Indication: VITAMIN SUPPLEMENTATION
  11. VITAMIN D [Concomitant]
     Indication: VITAMIN SUPPLEMENTATION

REACTIONS (4)
  - Erectile dysfunction [Not Recovered/Not Resolved]
  - Blood testosterone decreased [Not Recovered/Not Resolved]
  - Asthenia [Not Recovered/Not Resolved]
  - Product quality issue [Unknown]
